FAERS Safety Report 4699075-4 (Version None)
Quarter: 2005Q2

REPORT INFORMATION
  Report Type: 
  Country: None (occurrence: None)
  Receive Date: 20050624
  Receipt Date: 20050210
  Transmission Date: 20051028
  Serious: Yes (Other)
  Sender: FDA-Public Use
  Company Number: NZ-ROCHE-394902

PATIENT
  Sex: Male
  Weight: 716.7 kg

DRUGS (12)
  1. ROACCUTANE [Suspect]
     Indication: DRUG USE FOR UNKNOWN INDICATION
  2. ISOTRETINOIN ROCHE UNSPEC. [Suspect]
     Indication: DRUG USE FOR UNKNOWN INDICATION
     Dates: start: 20041020, end: 20041129
  3. MINOCYCLINE HCL [Concomitant]
     Dates: end: 20041005
  4. DEXAMPHETAMINE [Concomitant]
  5. TEMAZEPAM [Concomitant]
     Indication: SOMNOLENCE
     Dates: start: 20040708, end: 20041215
  6. CLONAZEPAM [Concomitant]
     Indication: ANXIETY
     Dates: start: 20040708, end: 20041215
  7. IMOVANE [Concomitant]
     Dates: start: 20041115, end: 20041215
  8. FLUOXETINE [Concomitant]
     Dates: start: 20041129
  9. ESTELLE [Concomitant]
     Dates: start: 20041129, end: 20050115
  10. ERYTHROMYCIN [Concomitant]
     Dates: start: 20041015
  11. AMOXICILLIN [Concomitant]
     Indication: TOOTH EXTRACTION
     Dates: start: 20041215
  12. IBUPROFEN [Concomitant]
     Indication: TOOTH EXTRACTION
     Dates: start: 20041215

REACTIONS (5)
  - CAESAREAN SECTION [None]
  - DRUG EXPOSURE DURING PREGNANCY [None]
  - PREGNANCY [None]
  - PREMATURE BABY [None]
  - SEXUAL ASSAULT VICTIM [None]
